FAERS Safety Report 14929447 (Version 1)
Quarter: 2018Q2

REPORT INFORMATION
  Report Type: Spontaneous
  Country: FR (occurrence: FR)
  Receive Date: 20180523
  Receipt Date: 20180523
  Transmission Date: 20180711
  Serious: Yes (Hospitalization)
  Sender: FDA-Public Use
  Company Number: FR-TEVA-2018-FR-860390

PATIENT
  Age: 83 Year
  Sex: Male
  Weight: 103 kg

DRUGS (7)
  1. AXEPIM 2 G, POUDRE POUR USAGE PARENTERAL [Suspect]
     Active Substance: CEFEPIME HYDROCHLORIDE
     Indication: OSTEITIS
     Dosage: 4 GRAM DAILY;
     Dates: start: 20171201, end: 20171205
  2. CEFOXITIN [Suspect]
     Active Substance: CEFOXITIN SODIUM
     Indication: OSTEITIS
     Route: 042
     Dates: start: 20171205, end: 20171213
  3. FUROSEMIDE. [Suspect]
     Active Substance: FUROSEMIDE
     Dates: start: 201603
  4. AMLODIPINE [Concomitant]
     Active Substance: AMLODIPINE BESYLATE
     Dosage: 5 MILLIGRAM DAILY;
     Route: 048
  5. OFLOXACIN. [Suspect]
     Active Substance: OFLOXACIN
     Indication: OSTEITIS
     Dosage: 400 MILLIGRAM DAILY;
     Route: 048
     Dates: start: 20171205, end: 20171213
  6. VANCOMYCINE [Suspect]
     Active Substance: VANCOMYCIN
     Indication: OSTEITIS
     Route: 042
     Dates: start: 20171202, end: 20171205
  7. CALCIPARINE [Concomitant]
     Active Substance: HEPARIN CALCIUM
     Dosage: 1.2 MILLIGRAM DAILY;

REACTIONS (1)
  - Acute kidney injury [Recovering/Resolving]

NARRATIVE: CASE EVENT DATE: 20171207
